FAERS Safety Report 6333265-X (Version None)
Quarter: 2009Q3

REPORT INFORMATION
  Report Type: 
  Country: None (occurrence: None)
  Receive Date: 20090828
  Receipt Date: 20090818
  Transmission Date: 20100115
  Serious: Yes (Death)
  Sender: FDA-Public Use
  Company Number: US-PFIZER INC-2009236177

PATIENT
  Sex: Female
  Weight: 70.306 kg

DRUGS (26)
  1. SUTENT [Suspect]
     Indication: RENAL CANCER
     Dosage: 50 MG, 1X/DAY
     Route: 048
     Dates: start: 20090614
  2. ACICLOVIR [Concomitant]
     Dosage: 400 MG, 2X/DAY
  3. AMLODIPINE BESYLATE [Concomitant]
     Dosage: 10 MG, UNK
  4. ASPIRIN [Concomitant]
     Dosage: 81 MG, UNK
  5. BIOTIN [Concomitant]
     Dosage: 5 MG, UNK
  6. CALCIUM [Concomitant]
     Dosage: 600 MG, UNK
  7. FELDENE [Concomitant]
     Indication: ARTHRITIS
     Dosage: UNK
  8. FISH OIL [Concomitant]
     Dosage: 2 CAPSULES, 2 TIMES DAILY
  9. FLEXERIL [Concomitant]
     Dosage: 10 MG, UNK
  10. FLONASE [Concomitant]
     Dosage: 50 UG, IN EACH NOSTRIL
  11. FOLIC ACID [Concomitant]
     Dosage: 0.8 MG, UNK
  12. IPRATROPIUM BROMIDE AND ALBUTEROL SULFATE [Concomitant]
     Dosage: 0.5 MG/2.5MG/3ML
  13. IRON [Concomitant]
     Dosage: 65 MG, DAILY
  14. LASIX [Concomitant]
     Dosage: 40 MG, UNK
  15. LEXAPRO [Concomitant]
     Indication: DEPRESSION
     Dosage: 20 MG, UNK
  16. LIDODERM [Concomitant]
     Indication: MUSCULOSKELETAL PAIN
     Dosage: UNK
  17. PLAVIX [Concomitant]
     Dosage: 75 MG, UNK
  18. PREVACID [Concomitant]
     Dosage: 30 MG, UNK
  19. SEREVENT [Concomitant]
     Indication: ASTHMA
     Dosage: 21 MG, UNK
  20. MONTELUKAST [Concomitant]
     Dosage: 10 MG, UNK
  21. SYNTHROID [Concomitant]
     Dosage: 0.112 UG, UNK
  22. TEVETEN [Concomitant]
     Dosage: 600 MG, UNK
  23. VICODIN [Concomitant]
     Indication: PAIN
     Dosage: 5 MG-200 MG
  24. VICODIN [Concomitant]
     Dosage: 200 MG, UNK
  25. VITAMIN D [Concomitant]
     Dosage: 400 UNITS
  26. VITAMIN E [Concomitant]
     Dosage: 400 UNITS

REACTIONS (1)
  - DEATH [None]
